FAERS Safety Report 7203833-1 (Version None)
Quarter: 2010Q4

REPORT INFORMATION
  Report Type: 
  Country: None (occurrence: None)
  Receive Date: 20101230
  Receipt Date: 20101220
  Transmission Date: 20110411
  Serious: Yes (Hospitalization)
  Sender: FDA-Public Use
  Company Number: US-GILEAD-2010-0034632

PATIENT
  Age: 74 Year
  Sex: Female

DRUGS (1)
  1. TRUVADA [Suspect]
     Indication: HIV INFECTION

REACTIONS (6)
  - ACCIDENT [None]
  - CHOLELITHIASIS [None]
  - LIGAMENT RUPTURE [None]
  - NEPHROLITHIASIS [None]
  - RENAL IMPAIRMENT [None]
  - URINARY TRACT INFECTION BACTERIAL [None]
